FAERS Safety Report 4485405-5 (Version None)
Quarter: 2004Q4

REPORT INFORMATION
  Report Type: 
  Country: None (occurrence: None)
  Receive Date: 20041026
  Receipt Date: 20040930
  Transmission Date: 20050328
  Serious: Yes (Hospitalization, Other)
  Sender: FDA-Public Use
  Company Number: JP-ABBOTT-04P-087-0275404-00

PATIENT
  Sex: Male
  Weight: 15 kg

DRUGS (3)
  1. SEVOFLURANE [Suspect]
     Indication: ANAESTHESIA
     Dosage: 3-8 PERCENT
     Route: 055
     Dates: start: 20040521, end: 20040521
  2. NITROUS OXIDE W/ OXYGEN [Concomitant]
     Indication: ANAESTHESIA
     Dosage: 4 LITERS
     Route: 055
     Dates: start: 20040521, end: 20040521
  3. OXYGEN [Concomitant]
     Indication: ANAESTHESIA
     Route: 055

REACTIONS (6)
  - CARDIAC FAILURE ACUTE [None]
  - EPSTEIN-BARR VIRUS ANTIBODY POSITIVE [None]
  - METABOLIC ACIDOSIS [None]
  - MYOCARDITIS [None]
  - PARVOVIRUS B19 SEROLOGY POSITIVE [None]
  - PERIPHERAL COLDNESS [None]
